FAERS Safety Report 6062853-3 (Version None)
Quarter: 2009Q1

REPORT INFORMATION
  Report Type: 
  Country: None (occurrence: None)
  Receive Date: 20090203
  Receipt Date: 20090127
  Transmission Date: 20090719
  Serious: Yes (Other)
  Sender: FDA-Public Use
  Company Number: US-JNJCH-2009002506

PATIENT
  Age: 56 Year
  Sex: Male

DRUGS (4)
  1. SUDAFED OM SINUS CONGESTION NASAL MIST [Suspect]
     Indication: NASAL CONGESTION
     Dosage: TEXT:^EXCESSIVE AMOUNTS^ 8 TIMES DAILY
     Route: 045
  2. AFRIN [Suspect]
     Indication: NASAL CONGESTION
     Dosage: TEXT:UNSPECIFIED
     Route: 065
  3. ANALGESICS [Concomitant]
     Indication: PAIN
     Dosage: TEXT:UNSPECIFIED
     Route: 065
  4. OXYCODONE [Concomitant]
     Indication: DRUG USE FOR UNKNOWN INDICATION
     Dosage: TEXT:UNSPECIFIED
     Route: 065

REACTIONS (3)
  - DEPENDENCE [None]
  - INCORRECT DRUG ADMINISTRATION DURATION [None]
  - INTENTIONAL OVERDOSE [None]
